FAERS Safety Report 9477940 (Version 1)
Quarter: 2013Q3

REPORT INFORMATION
  Report Type: Spontaneous
  Country: US (occurrence: None)
  Receive Date: 20130826
  Receipt Date: 20130826
  Transmission Date: 20140515
  Serious: Yes (Hospitalization)
  Sender: FDA-Public Use
  Company Number: None

PATIENT
  Age: 69 Year
  Sex: Male
  Weight: 72.2 kg

DRUGS (2)
  1. VANCOMYCIN [Suspect]
     Route: 042
     Dates: start: 20130331, end: 20130414
  2. PIPERACILLIN/TAZOBACTAM [Suspect]
     Route: 042
     Dates: start: 20130331, end: 20130414

REACTIONS (2)
  - Renal failure acute [None]
  - Renal failure acute [None]
